FAERS Safety Report 4607932-X (Version None)
Quarter: 2005Q2

REPORT INFORMATION
  Report Type: 
  Country: None (occurrence: None)
  Receive Date: 20050303
  Receipt Date: 20041209
  Transmission Date: 20051028
  Serious: No
  Sender: FDA-Public Use
  Company Number: 208597

PATIENT
  Sex: Female

DRUGS (10)
  1. XOLAIR [Suspect]
     Indication: ASTHMA
     Dosage: 375 MG, Q2W, SUBCUTANEOUS
     Route: 058
     Dates: start: 20040520, end: 20040602
  2. ALBUTEROL (ALBUTEROL SULFATE) [Concomitant]
  3. FLONASE [Concomitant]
  4. LIPITOR [Concomitant]
  5. ADVAIR (FLUTICASONE PROPIONATE) [Concomitant]
  6. SINGULAIR [Concomitant]
  7. PROTONIX [Concomitant]
  8. INSULIN [Concomitant]
  9. TYLENOL #3 (UNITED STATES) (ACETAMINOPHEN, CODEINE PHOSPHATE) [Concomitant]
  10. ZYRTEC [Concomitant]

REACTIONS (1)
  - HEADACHE [None]
